FAERS Safety Report 7967674-X (Version None)
Quarter: 2011Q4

REPORT INFORMATION
  Report Type: 
  Country: None (occurrence: None)
  Receive Date: 20111209
  Receipt Date: 20111129
  Transmission Date: 20120403
  Serious: Yes (Other)
  Sender: FDA-Public Use
  Company Number: US-BAYER-201039640NA

PATIENT
  Age: 47 Year
  Sex: Female
  Weight: 81.633 kg

DRUGS (2)
  1. YAZ [Suspect]
     Indication: PREMENSTRUAL SYNDROME
     Dates: start: 20060501, end: 20060501
  2. TRAZODONE HCL [Concomitant]
     Dosage: UNK
     Route: 048
     Dates: start: 20060503

REACTIONS (4)
  - THROMBOSIS [None]
  - THROMBOPHLEBITIS SUPERFICIAL [None]
  - ERYTHEMA [None]
  - PAIN IN EXTREMITY [None]
